FAERS Safety Report 16540261 (Version 1)
Quarter: 2019Q3

REPORT INFORMATION
  Report Type: Spontaneous
  Country: US (occurrence: US)
  Receive Date: 20190706
  Receipt Date: 20190706
  Transmission Date: 20191004
  Serious: Yes (Life-Threatening, Hospitalization)
  Sender: FDA-Public Use
  Company Number: None

PATIENT
  Age: 63 Year
  Sex: Male
  Weight: 112.5 kg

DRUGS (13)
  1. CPAP [Concomitant]
     Active Substance: DEVICE
  2. AMOXICILLIN AND CLAVULANATE POTASSIUM TABLET 875 MG - 125 MG ORAL TAB [Suspect]
     Active Substance: AMOXICILLIN\CLAVULANATE POTASSIUM
     Indication: RHINITIS
     Dosage: ?          QUANTITY:1 TABLET(S);?
     Route: 048
  3. CHLORTHALIDONE. [Concomitant]
     Active Substance: CHLORTHALIDONE
  4. TELMISARTAN. [Concomitant]
     Active Substance: TELMISARTAN
  5. VIAGRA [Concomitant]
     Active Substance: SILDENAFIL CITRATE
  6. CIGARETTES [Concomitant]
     Active Substance: NICOTINE
  7. DUST MITES [Concomitant]
  8. HYDROXYZINE [Concomitant]
     Active Substance: HYDROXYZINE HYDROCHLORIDE
  9. SEPTRA [Concomitant]
     Active Substance: SULFAMETHOXAZOLE\TRIMETHOPRIM
  10. GABAPENTIN. [Concomitant]
     Active Substance: GABAPENTIN
  11. TAMSULOSIN [Concomitant]
     Active Substance: TAMSULOSIN
  12. ASPIRIN. [Concomitant]
     Active Substance: ASPIRIN
  13. PREDNISONE. [Concomitant]
     Active Substance: PREDNISONE

REACTIONS (6)
  - Syncope [None]
  - Atrial fibrillation [None]
  - Acute kidney injury [None]
  - Hyperglycaemia [None]
  - Hypokalaemia [None]
  - Sepsis [None]

NARRATIVE: CASE EVENT DATE: 20190628
